FAERS Safety Report 23576675 (Version 1)
Quarter: 2024Q1

REPORT INFORMATION
  Report Type: Spontaneous
  Country: CA (occurrence: CA)
  Receive Date: 20240228
  Receipt Date: 20240228
  Transmission Date: 20240410
  Serious: Yes (Death, Life-Threatening)
  Sender: FDA-Public Use
  Company Number: CA-FreseniusKabi-FK202402836

PATIENT
  Age: 85 Year
  Sex: Male

DRUGS (2)
  1. FENTANYL [Suspect]
     Active Substance: FENTANYL\FENTANYL CITRATE
     Indication: Product used for unknown indication
     Dosage: DOSAGE FORM-NOT SPECIFIED
     Route: 042
  2. MIDAZOLAM HYDROCHLORIDE [Suspect]
     Active Substance: MIDAZOLAM HYDROCHLORIDE
     Indication: Product used for unknown indication
     Dosage: DOSAGE FORM-SOLUTION INTRAMUSCULAR

REACTIONS (3)
  - Altered state of consciousness [Fatal]
  - Coronary artery occlusion [Fatal]
  - Disease progression [Fatal]
